FAERS Safety Report 4464948-4 (Version None)
Quarter: 2004Q4

REPORT INFORMATION
  Report Type: 
  Country: None (occurrence: None)
  Receive Date: 20041004
  Receipt Date: 20040401
  Transmission Date: 20050328
  Serious: No
  Sender: FDA-Public Use
  Company Number: 368208

PATIENT
  Age: 66 Year
  Sex: Female

DRUGS (8)
  1. COREG [Suspect]
     Indication: ILL-DEFINED DISORDER
     Dosage: 12.5MG TWICE PER DAY
     Route: 048
     Dates: start: 20030601
  2. FUROSEMIDE [Concomitant]
  3. LIPITOR [Concomitant]
  4. ALTACE [Concomitant]
  5. LANOXIN [Concomitant]
  6. POTASSIUM [Concomitant]
  7. FOSAMAX [Concomitant]
  8. COUMADIN [Concomitant]

REACTIONS (2)
  - PHOTOSENSITIVITY REACTION [None]
  - VISUAL DISTURBANCE [None]
